FAERS Safety Report 6280393-3 (Version None)
Quarter: 2009Q3

REPORT INFORMATION
  Report Type: 
  Country: None (occurrence: None)
  Receive Date: 20090724
  Receipt Date: 20090713
  Transmission Date: 20100115
  Serious: Yes (Death, Hospitalization)
  Sender: FDA-Public Use
  Company Number: AR-PFIZER INC-2006109040

PATIENT
  Age: 58 Year

DRUGS (12)
  1. SUNITINIB MALATE [Suspect]
     Indication: RENAL CELL CARCINOMA
     Dosage: 37.5 MG, DAILY, 4/2 SCHEDULE, TDD 37.5 MG
     Route: 048
     Dates: start: 20060524, end: 20060903
  2. ALL OTHER THERAPEUTIC PRODUCTS [Concomitant]
     Route: 048
     Dates: start: 20060501
  3. DICLOFENAC [Concomitant]
     Route: 048
     Dates: start: 20060501
  4. DEXTROPROPOXYPHENE [Concomitant]
     Route: 048
     Dates: start: 20060614
  5. IBUPROFEN [Concomitant]
     Route: 048
     Dates: start: 20060614
  6. DEXAMETHASONE [Concomitant]
     Route: 030
     Dates: start: 20060614, end: 20060614
  7. ENALAPRIL MALEATE [Concomitant]
     Route: 048
     Dates: start: 20060614
  8. TRAMADOL [Concomitant]
     Route: 048
     Dates: start: 20060613, end: 20060620
  9. LEVOFLOXACIN [Concomitant]
     Route: 048
     Dates: start: 20060630, end: 20060705
  10. OXYCODONE HCL [Concomitant]
     Route: 048
     Dates: start: 20060814
  11. MEPREDNISONE [Concomitant]
     Route: 048
     Dates: start: 20060814
  12. AMOXICILLIN [Concomitant]
     Route: 048
     Dates: start: 20060814, end: 20060827

REACTIONS (3)
  - ISCHAEMIC STROKE [None]
  - NECROTISING FASCIITIS [None]
  - RENAL ABSCESS [None]
